FAERS Safety Report 19106734 (Version 2)
Quarter: 2021Q2

REPORT INFORMATION
  Report Type: Spontaneous
  Country: JP (occurrence: JP)
  Receive Date: 20210408
  Receipt Date: 20210425
  Transmission Date: 20210717
  Serious: Yes (Other)
  Sender: FDA-Public Use
  Company Number: NVSJ2021JP003263

PATIENT
  Age: 79 Year
  Sex: Male

DRUGS (1)
  1. BEOVU [Suspect]
     Active Substance: BROLUCIZUMAB-DBLL
     Indication: AGE-RELATED MACULAR DEGENERATION
     Dosage: 6 MG
     Route: 031
     Dates: start: 20210204, end: 20210204

REACTIONS (7)
  - Ocular hypertension [Unknown]
  - Vitreous opacities [Recovered/Resolved with Sequelae]
  - Glaucoma [Recovered/Resolved with Sequelae]
  - Vision blurred [Unknown]
  - Uveitis [Recovered/Resolved with Sequelae]
  - Anterior chamber cell [Unknown]
  - Anterior chamber inflammation [Unknown]

NARRATIVE: CASE EVENT DATE: 20210224
